FAERS Safety Report 15000468 (Version 2)
Quarter: 2020Q3

REPORT INFORMATION
  Report Type: Spontaneous
  Country: FR (occurrence: FR)
  Receive Date: 20180612
  Receipt Date: 20180625
  Transmission Date: 20201104
  Serious: Yes (Other)
  Sender: FDA-Public Use
  Company Number: FR-PFIZER INC-2018232833

PATIENT
  Age: 53 Year
  Sex: Female

DRUGS (9)
  1. PIPERACILLIN/TAZOBACTAM [Suspect]
     Active Substance: PIPERACILLIN SODIUM\TAZOBACTAM SODIUM
     Indication: STENOTROPHOMONAS INFECTION
     Dosage: UNK
  2. AMIKACIN. [Suspect]
     Active Substance: AMIKACIN
     Indication: STENOTROPHOMONAS INFECTION
  3. PIPERACILLIN/TAZOBACTAM [Suspect]
     Active Substance: PIPERACILLIN SODIUM\TAZOBACTAM SODIUM
     Indication: WOUND INFECTION BACTERIAL
  4. MAFENIDE ACETATE. [Suspect]
     Active Substance: MAFENIDE ACETATE
     Indication: STENOTROPHOMONAS INFECTION
  5. MAFENIDE ACETATE. [Suspect]
     Active Substance: MAFENIDE ACETATE
     Indication: WOUND INFECTION BACTERIAL
  6. AMIKACIN. [Suspect]
     Active Substance: AMIKACIN
     Indication: ENTEROBACTER INFECTION
     Dosage: UNK
  7. PIPERACILLIN/TAZOBACTAM [Suspect]
     Active Substance: PIPERACILLIN SODIUM\TAZOBACTAM SODIUM
     Indication: ENTEROBACTER INFECTION
  8. AMIKACIN. [Suspect]
     Active Substance: AMIKACIN
     Indication: WOUND INFECTION BACTERIAL
  9. MAFENIDE ACETATE. [Suspect]
     Active Substance: MAFENIDE ACETATE
     Indication: ENTEROBACTER INFECTION
     Dosage: UNK

REACTIONS (2)
  - Aspergillus infection [Recovering/Resolving]
  - Wound infection fungal [Recovering/Resolving]
